FAERS Safety Report 18350520 (Version 1)
Quarter: 2020Q4

REPORT INFORMATION
  Report Type: Spontaneous
  Country: US (occurrence: US)
  Receive Date: 20201006
  Receipt Date: 20201006
  Transmission Date: 20210114
  Serious: No
  Sender: FDA-Public Use
  Company Number: US-LANNETT COMPANY, INC.-US-2020LAN000056

PATIENT
  Sex: Male

DRUGS (1)
  1. FLUPHENAZINE HYDROCHLORIDE. [Suspect]
     Active Substance: FLUPHENAZINE HYDROCHLORIDE
     Indication: PSYCHOTIC DISORDER
     Dosage: 5 MG, QD
     Route: 048
     Dates: start: 2005

REACTIONS (6)
  - Pain [Recovered/Resolved]
  - Decreased activity [Unknown]
  - Anger [Unknown]
  - Drug ineffective [Unknown]
  - Spinal pain [Recovered/Resolved]
  - Mood altered [Unknown]
